FAERS Safety Report 9059470 (Version 1)
Quarter: 2013Q1

REPORT INFORMATION
  Report Type: Spontaneous
  Country: US (occurrence: US)
  Receive Date: 20130211
  Receipt Date: 20130211
  Transmission Date: 20140127
  Serious: Yes (Other)
  Sender: FDA-Public Use
  Company Number: US-INCYTE CORPORATION-2013IN000153

PATIENT
  Age: 63 None
  Sex: Male

DRUGS (4)
  1. JAKAFI [Suspect]
     Indication: MYELOFIBROSIS
     Dosage: 5 MG, BID
     Route: 048
     Dates: start: 20120119
  2. MORPHINE SULFATE [Concomitant]
  3. MORPHINE EXTENDED RELEASE [Concomitant]
  4. HYDROMORPHONE [Concomitant]

REACTIONS (1)
  - Heart rate decreased [Unknown]
